FAERS Safety Report 10611667 (Version 1)
Quarter: 2014Q4

REPORT INFORMATION
  Report Type: Spontaneous
  Country: US (occurrence: US)
  Receive Date: 20141126
  Receipt Date: 20141126
  Transmission Date: 20150529
  Serious: Yes (Hospitalization)
  Sender: FDA-Public Use
  Company Number: US-SPECTRUM PHARMACEUTICALS, INC.-14-B-US-00336

PATIENT
  Sex: Female

DRUGS (1)
  1. BELEODAQ [Suspect]
     Active Substance: BELINOSTAT
     Indication: PERIPHERAL T-CELL LYMPHOMA UNSPECIFIED
     Dosage: 1000 MG/M2, QD
     Dates: start: 20141103, end: 20141104

REACTIONS (2)
  - Dyspnoea [Unknown]
  - Hypoxia [Unknown]

NARRATIVE: CASE EVENT DATE: 20141105
